FAERS Safety Report 7751880-3 (Version None)
Quarter: 2011Q3

REPORT INFORMATION
  Report Type: 
  Country: None (occurrence: None)
  Receive Date: 20110914
  Receipt Date: 20110914
  Transmission Date: 20111222
  Serious: Yes (Other)
  Sender: FDA-Public Use
  Company Number: None

PATIENT
  Age: 65 Year
  Sex: Female

DRUGS (8)
  1. LYSINOPRIL [Concomitant]
  2. HYDROCODONE BITARTRATE AND ACETAMINOPHEN [Concomitant]
  3. ATOVAQUONE [Concomitant]
  4. ONDANSETRON [Concomitant]
  5. VERAPAMIL [Concomitant]
  6. REVLIMID [Suspect]
     Indication: MULTIPLE MYELOMA
     Dosage: REVLIMID 5 MG DAILY ORALLY
     Route: 048
     Dates: start: 20110801
  7. REVLIMID [Suspect]
     Indication: MULTIPLE MYELOMA
     Dosage: REVLIMID 5 MG DAILY ORALLY
     Route: 048
     Dates: start: 20100601, end: 20100901
  8. SIMVASTATIN [Concomitant]

REACTIONS (2)
  - FATIGUE [None]
  - NEUTROPENIA [None]
